FAERS Safety Report 19719905 (Version 1)
Quarter: 2021Q3

REPORT INFORMATION
  Report Type: Spontaneous
  Country: US (occurrence: US)
  Receive Date: 20210819
  Receipt Date: 20210819
  Transmission Date: 20211014
  Serious: Yes (Death)
  Sender: FDA-Public Use
  Company Number: None

PATIENT
  Age: 81 Year
  Sex: Male

DRUGS (1)
  1. WARFARIN (WARFARIN NA (EXELAN) 5MG TAB) [Suspect]
     Active Substance: WARFARIN SODIUM
     Indication: ATRIAL FIBRILLATION

REACTIONS (5)
  - Transient ischaemic attack [None]
  - Haemorrhage intracranial [None]
  - Cerebrovascular accident [None]
  - Fall [None]
  - Dysphagia [None]

NARRATIVE: CASE EVENT DATE: 20210425
